FAERS Safety Report 5572526-9 (Version None)
Quarter: 2007Q4

REPORT INFORMATION
  Report Type: 
  Country: None (occurrence: None)
  Receive Date: 20071222
  Receipt Date: 20071212
  Transmission Date: 20080405
  Serious: Yes (Other)
  Sender: FDA-Public Use
  Company Number: US-PFIZER INC-2007106235

PATIENT
  Sex: Female
  Weight: 61.363 kg

DRUGS (8)
  1. CHANTIX [Suspect]
     Indication: SMOKING CESSATION THERAPY
     Dates: start: 20070930, end: 20071206
  2. LORTAB [Concomitant]
  3. PERCOCET [Concomitant]
  4. CELEBREX [Concomitant]
  5. IBANDRONATE SODIUM [Concomitant]
  6. CALCIUM [Concomitant]
  7. ASCORBIC ACID [Concomitant]
  8. VITAMIN E [Concomitant]

REACTIONS (14)
  - ABNORMAL DREAMS [None]
  - CONSTIPATION [None]
  - DECREASED APPETITE [None]
  - DISTURBANCE IN ATTENTION [None]
  - FLAT AFFECT [None]
  - GINGIVAL DISCOLOURATION [None]
  - HAEMORRHOIDS [None]
  - INSOMNIA [None]
  - IRRITABILITY [None]
  - MEMORY IMPAIRMENT [None]
  - NIGHT BLINDNESS [None]
  - PERSONALITY CHANGE [None]
  - VISION BLURRED [None]
  - VISUAL DISTURBANCE [None]
